FAERS Safety Report 13456981 (Version 2)
Quarter: 2017Q3

REPORT INFORMATION
  Report Type: Spontaneous
  Country: US (occurrence: US)
  Receive Date: 20170419
  Receipt Date: 20170811
  Transmission Date: 20171127
  Serious: Yes (Hospitalization, Other)
  Sender: FDA-Public Use
  Company Number: US-INDIVIOR LIMITED-INDV-100474-2017

PATIENT
  Sex: Female

DRUGS (2)
  1. HEROIN [Suspect]
     Active Substance: DIAMORPHINE
     Indication: PRODUCT USED FOR UNKNOWN INDICATION
     Dosage: UNKNOWN
     Route: 064
     Dates: start: 2015, end: 20160809
  2. SUBUTEX [Suspect]
     Active Substance: BUPRENORPHINE HYDROCHLORIDE
     Indication: DRUG USE DISORDER
     Dosage: UNKNOWN
     Route: 064
     Dates: end: 20160809

REACTIONS (5)
  - Tremor neonatal [Unknown]
  - Foetal exposure during pregnancy [Recovered/Resolved]
  - Crying [Unknown]
  - Drug withdrawal syndrome neonatal [Unknown]
  - Respiratory rate increased [Unknown]

NARRATIVE: CASE EVENT DATE: 201608
